FAERS Safety Report 4577568-8 (Version None)
Quarter: 2005Q1

REPORT INFORMATION
  Report Type: 
  Country: None (occurrence: None)
  Receive Date: 20050208
  Receipt Date: 20050127
  Transmission Date: 20050727
  Serious: Yes (Hospitalization)
  Sender: FDA-Public Use
  Company Number: 2004AP06262

PATIENT
  Age: 63 Year
  Sex: Male
  Weight: 50.5 kg

DRUGS (12)
  1. SEROQUEL [Suspect]
     Indication: DELIRIUM
     Dosage: 25 MG DAILY PO
     Route: 048
     Dates: start: 20040114, end: 20041024
  2. SEROQUEL [Suspect]
     Indication: DELIRIUM
     Dosage: 50 MG TID PO
     Route: 048
     Dates: start: 20041025, end: 20041102
  3. SEROQUEL [Suspect]
     Indication: DELIRIUM
     Dosage: 150 MG QID PO
     Route: 048
     Dates: start: 20041102, end: 20041104
  4. SEROQUEL [Suspect]
     Indication: DELIRIUM
     Dosage: 250 MG QID PO
     Route: 048
     Dates: start: 20041104, end: 20041110
  5. ARICEPT [Concomitant]
  6. SERENACE [Concomitant]
  7. ARTANE [Concomitant]
  8. NEO DOPASTON [Concomitant]
  9. RISPERDAL [Concomitant]
  10. ZYPREXA [Concomitant]
  11. PURSENNID [Concomitant]
  12. MAGNESIUM OXIDE [Concomitant]

REACTIONS (11)
  - ALANINE AMINOTRANSFERASE INCREASED [None]
  - ASPARTATE AMINOTRANSFERASE INCREASED [None]
  - BLOOD PRESSURE DECREASED [None]
  - BLOOD TEST ABNORMAL [None]
  - CHOLELITHIASIS [None]
  - HEPATIC FUNCTION ABNORMAL [None]
  - HYPERPLASTIC CHOLECYSTOPATHY [None]
  - INCREASED APPETITE [None]
  - INFLAMMATION [None]
  - PARKINSONISM [None]
  - PYREXIA [None]
